FAERS Safety Report 10489359 (Version 1)
Quarter: 2014Q4

REPORT INFORMATION
  Report Type: Spontaneous
  Country: US (occurrence: None)
  Receive Date: 20141001
  Receipt Date: 20141001
  Transmission Date: 20150528
  Serious: Yes (Other)
  Sender: FDA-Public Use
  Company Number: None

PATIENT
  Age: 91 Year
  Sex: Female
  Weight: 61.1 kg

DRUGS (13)
  1. LATANOPROST OPHTHALMIC [Concomitant]
  2. PRAVASTATIN [Concomitant]
     Active Substance: PRAVASTATIN\PRAVASTATIN SODIUM
  3. ACTETAZOLAMIDE [Concomitant]
  4. AMLOPIINE [Concomitant]
  5. METOPROLOL [Concomitant]
     Active Substance: METOPROLOL
  6. RIVAROXABAN [Concomitant]
     Active Substance: RIVAROXABAN
  7. TRAMADOL [Concomitant]
     Active Substance: TRAMADOL
  8. XARELTO [Suspect]
     Active Substance: RIVAROXABAN
     Indication: DEEP VEIN THROMBOSIS
     Route: 048
     Dates: start: 20140514
  9. BRIMONIDINE-TIMOLOL OPHTHALMIC [Concomitant]
  10. FUROSEMIDE. [Concomitant]
     Active Substance: FUROSEMIDE
  11. XARELTO [Suspect]
     Active Substance: RIVAROXABAN
     Indication: ATRIAL FIBRILLATION
     Route: 048
     Dates: start: 20140514
  12. CLONIDINE. [Concomitant]
     Active Substance: CLONIDINE
  13. CEFUROXIME. [Concomitant]
     Active Substance: CEFUROXIME

REACTIONS (3)
  - Fall [None]
  - Pulmonary embolism [None]
  - Deep vein thrombosis [None]

NARRATIVE: CASE EVENT DATE: 20140718
